FAERS Safety Report 23565690 (Version 1)
Quarter: 2024Q1

REPORT INFORMATION
  Report Type: Spontaneous
  Country: US (occurrence: US)
  Receive Date: 20240226
  Receipt Date: 20240226
  Transmission Date: 20240409
  Serious: Yes (Other)
  Sender: FDA-Public Use
  Company Number: US-PFIZER INC-202400047587

PATIENT
  Sex: Male

DRUGS (3)
  1. ELRANATAMAB [Suspect]
     Active Substance: ELRANATAMAB
     Indication: Amyloidosis
     Dosage: 12 MG
  2. ELRANATAMAB [Suspect]
     Active Substance: ELRANATAMAB
     Dosage: 32 MG
  3. ELRANATAMAB [Suspect]
     Active Substance: ELRANATAMAB
     Dosage: 76 MG

REACTIONS (2)
  - Blood immunoglobulin G decreased [Recovering/Resolving]
  - Off label use [Unknown]
